FAERS Safety Report 7304578-X (Version None)
Quarter: 2011Q1

REPORT INFORMATION
  Report Type: 
  Country: None (occurrence: None)
  Receive Date: 20110222
  Receipt Date: 20101228
  Transmission Date: 20110831
  Serious: Yes (Hospitalization)
  Sender: FDA-Public Use
  Company Number: PHHY2010FR90336

PATIENT
  Sex: Male

DRUGS (13)
  1. JANUVIA [Suspect]
     Dosage: 1 DF, QD
     Route: 048
  2. GLUCOPHAGE [Suspect]
     Dosage: 1 DF, TID
  3. RIVOTRIL [Suspect]
     Dosage: 1 DF, UNK
     Dates: start: 20101030
  4. AMAREL [Suspect]
     Dosage: 1 DF, QD
     Route: 048
  5. GLUCOPHAGE [Suspect]
     Dosage: 7 DF, UNK
     Dates: start: 20101030
  6. COTAREG [Suspect]
     Dosage: HYDROCHLOROTHIAZIDE 160 MG AND VALSARTAN 12.5 MG
     Route: 048
  7. AMAREL [Suspect]
     Dosage: 7 DF, QD
     Route: 048
     Dates: start: 20101030
  8. DEPAKENE [Suspect]
     Dosage: 1 DF, BID
     Route: 048
  9. DEPAKENE [Suspect]
     Dosage: 7 DF, ONCE
     Route: 048
     Dates: start: 20101030
  10. ZOLPIDEM [Concomitant]
  11. COTAREG [Suspect]
     Dosage: 7 DF, QD
     Route: 048
     Dates: start: 20101030
  12. JANUVIA [Suspect]
     Dosage: 7 DF, QD
     Route: 048
     Dates: start: 20101030
  13. VOLTAREN [Concomitant]
     Dosage: 100 MG, QD

REACTIONS (11)
  - OVERDOSE [None]
  - HYPOGLYCAEMIA [None]
  - SINGLE FUNCTIONAL KIDNEY [None]
  - WEIGHT INCREASED [None]
  - RENAL CELL CARCINOMA [None]
  - PSYCHOMOTOR RETARDATION [None]
  - RENAL FAILURE ACUTE [None]
  - PAIN [None]
  - DISORIENTATION [None]
  - DEPRESSED LEVEL OF CONSCIOUSNESS [None]
  - GENERALISED OEDEMA [None]
